FAERS Safety Report 5065155-7 (Version None)
Quarter: 2006Q3

REPORT INFORMATION
  Report Type: 
  Country: None (occurrence: None)
  Receive Date: 20060725
  Receipt Date: 20060707
  Transmission Date: 20061208
  Serious: Yes (Other)
  Sender: FDA-Public Use
  Company Number: DE200607001403

PATIENT
  Age: 26 Year
  Sex: Female

DRUGS (5)
  1. ZYPREXA [Suspect]
     Indication: ANOREXIA AND BULIMIA SYNDROME
     Dosage: SEE IMAGE
     Dates: end: 20060629
  2. ZYPREXA [Suspect]
     Indication: ANOREXIA AND BULIMIA SYNDROME
     Dosage: SEE IMAGE
     Dates: start: 20060630, end: 20060707
  3. MIRTAZAPINE [Concomitant]
  4. FERRO-SANOL DUODENAL (FERROUS SULFATE) [Concomitant]
  5. FRESUBIN             (CARBOHYDRATES NOS, FATTY ACIDS NOS, MINERALS NOS [Concomitant]

REACTIONS (1)
  - LEUKOPENIA [None]
